FAERS Safety Report 4431437-2 (Version None)
Quarter: 2004Q3

REPORT INFORMATION
  Report Type: 
  Country: None (occurrence: None)
  Receive Date: 20040824
  Receipt Date: 20040816
  Transmission Date: 20050211
  Serious: Yes (Other)
  Sender: FDA-Public Use
  Company Number: GB-GLAXOSMITHKLINE-B0342585A

PATIENT
  Age: 25 Year
  Sex: Female
  Weight: 77 kg

DRUGS (3)
  1. ZYBAN [Suspect]
     Indication: SMOKING CESSATION THERAPY
     Dosage: 150MG PER DAY
     Route: 048
     Dates: start: 20040605, end: 20040617
  2. DESOGESTREL AND ETHINYL ESTRADIOL [Suspect]
     Indication: CONTRACEPTION
     Route: 048
     Dates: start: 20010601
  3. FEXOFENADINE HCL [Concomitant]
     Indication: SEASONAL ALLERGY
     Dosage: 180MG PER DAY
     Route: 048
     Dates: start: 20040604

REACTIONS (2)
  - DRUG INTERACTION [None]
  - HAEMORRHAGE [None]
